FAERS Safety Report 10221412 (Version 1)
Quarter: 2014Q2

REPORT INFORMATION
  Report Type: Spontaneous
  Country: US (occurrence: None)
  Receive Date: 20140605
  Receipt Date: 20140605
  Transmission Date: 20141212
  Serious: Yes (Other)
  Sender: FDA-Public Use
  Company Number: None

PATIENT
  Age: 69 Year
  Sex: Male
  Weight: 88 kg

DRUGS (1)
  1. ZELBORAF 240MG TAB GENENTEC [Suspect]
     Indication: PROSTATE CANCER
     Route: 048
     Dates: start: 20140423, end: 20140513

REACTIONS (1)
  - Toxic epidermal necrolysis [None]
